FAERS Safety Report 25487358 (Version 1)
Quarter: 2025Q2

REPORT INFORMATION
  Report Type: Report from Study
  Country: US (occurrence: US)
  Receive Date: 20250627
  Receipt Date: 20250627
  Transmission Date: 20250716
  Serious: Yes (Death, Other)
  Sender: TAKEDA
  Company Number: US-TAKEDA-2025TUS054362

PATIENT
  Sex: Female

DRUGS (7)
  1. FRUQUINTINIB [Suspect]
     Active Substance: FRUQUINTINIB
     Indication: Colon cancer
  2. FRUQUINTINIB [Suspect]
     Active Substance: FRUQUINTINIB
  3. ELIQUIS [Concomitant]
     Active Substance: APIXABAN
  4. ACETAMINOPHEN\HYDROCODONE [Concomitant]
     Active Substance: ACETAMINOPHEN\HYDROCODONE
  5. GABAPENTIN [Concomitant]
     Active Substance: GABAPENTIN
  6. OXYCODONE [Concomitant]
     Active Substance: OXYCODONE
  7. MOTRIN IB [Concomitant]
     Active Substance: IBUPROFEN

REACTIONS (4)
  - Death [Fatal]
  - Tearfulness [Not Recovered/Not Resolved]
  - Feeling abnormal [Not Recovered/Not Resolved]
  - Arthralgia [Not Recovered/Not Resolved]
